FAERS Safety Report 5463855-8 (Version None)
Quarter: 2007Q3

REPORT INFORMATION
  Report Type: 
  Country: None (occurrence: None)
  Receive Date: 20070921
  Receipt Date: 20070917
  Transmission Date: 20080115
  Serious: Yes (Other)
  Sender: FDA-Public Use
  Company Number: GR-RB-008024-07

PATIENT
  Age: 29 Year
  Sex: Male

DRUGS (6)
  1. SUBUTEX [Suspect]
     Dosage: 22MG EVERY 2 DAYS AND 32 MG EVERY 3 DAYS.
     Route: 065
     Dates: start: 20070421
  2. SUBUTEX [Suspect]
     Dosage: 14MG EVERY 1 DAY AND 28MG EVERY 3 DAYS.
     Route: 065
     Dates: start: 20070626
  3. DISTRANEURIN [Suspect]
     Indication: ALCOHOLISM
     Route: 048
     Dates: start: 20070820, end: 20070831
  4. AKINETON [Suspect]
     Route: 048
     Dates: start: 20070820, end: 20070831
  5. BENZODIAZEPINES [Concomitant]
     Indication: DRUG USE FOR UNKNOWN INDICATION
     Dosage: DOSAGE UNKNOWN.
     Route: 065
  6. REMERON [Concomitant]
     Indication: DRUG USE FOR UNKNOWN INDICATION
     Dosage: DOSAGE UNKNOWN.
     Route: 065
     Dates: start: 20070701

REACTIONS (4)
  - CONFUSIONAL STATE [None]
  - NYSTAGMUS [None]
  - OSTEOARTHRITIS [None]
  - SOMNOLENCE [None]
